FAERS Safety Report 5236902-6 (Version None)
Quarter: 2007Q1

REPORT INFORMATION
  Report Type: 
  Country: None (occurrence: None)
  Receive Date: 20070213
  Receipt Date: 20070202
  Transmission Date: 20070707
  Serious: Yes (Life-Threatening, Hospitalization)
  Sender: FDA-Public Use
  Company Number: US-JNJFOC-20070201045

PATIENT
  Age: 69 Year
  Sex: Male
  Weight: 75.75 kg

DRUGS (6)
  1. REMICADE [Suspect]
     Route: 042
  2. REMICADE [Suspect]
     Indication: COLITIS ULCERATIVE
     Route: 042
  3. COLAZAL [Concomitant]
     Indication: CROHN'S DISEASE
  4. IMURAN [Concomitant]
     Indication: CROHN'S DISEASE
  5. PREDNISONE [Concomitant]
     Indication: CROHN'S DISEASE
  6. IMODIUM [Concomitant]
     Indication: DIARRHOEA

REACTIONS (3)
  - ENCEPHALITIS [None]
  - LISTERIA SEPSIS [None]
  - MENINGITIS [None]
